FAERS Safety Report 9575806 (Version 2)
Quarter: 2013Q4

REPORT INFORMATION
  Report Type: Spontaneous
  Country: US (occurrence: US)
  Receive Date: 20131001
  Receipt Date: 20131001
  Transmission Date: 20140711
  Serious: No
  Sender: FDA-Public Use
  Company Number: US-AMGEN-USASP2012062670

PATIENT
  Age: 62 Year
  Sex: Female
  Weight: 158.73 kg

DRUGS (18)
  1. PROCRIT [Suspect]
     Indication: RED BLOOD CELL ABNORMALITY
     Dosage: 10,000 TO 20,000 UNIT, QWK
     Route: 058
     Dates: start: 2010, end: 201209
  2. SYNTHROID [Concomitant]
     Indication: THYROID DISORDER
     Dosage: 100 MG, UNK
     Route: 048
  3. KLOR-CON [Concomitant]
     Indication: BLOOD POTASSIUM
     Dosage: 20 MEQ, TID
     Route: 048
  4. PLAVIX [Concomitant]
     Dosage: 75 MG, UNK
     Route: 048
  5. METOPROLOL [Concomitant]
     Indication: BLOOD PRESSURE
     Dosage: 50 MG, BID
     Route: 048
  6. ISOSORBIDE [Concomitant]
     Dosage: 30 MG, UNK
     Route: 048
  7. PREDNISONE [Concomitant]
     Dosage: 5 MG, UNK
     Route: 048
  8. ULORIC [Concomitant]
     Indication: GOUT
     Dosage: 80 MG, UNK
     Route: 048
  9. SIMVASTATIN [Concomitant]
     Indication: BLOOD CHOLESTEROL
     Dosage: 10 MG, UNK
     Route: 048
  10. HYDROXYZINE [Concomitant]
     Indication: PRURITUS
     Dosage: 50 MG, BID
     Route: 048
  11. OXYCODONE [Concomitant]
     Dosage: 7.5/500 MG
     Route: 048
  12. GABAPENTIN [Concomitant]
     Dosage: UNK
  13. LANTUS [Concomitant]
     Indication: DIABETES MELLITUS
     Dosage: 30/40 U AT BEDTIME
     Route: 058
  14. HUMALOG [Concomitant]
     Indication: DIABETES MELLITUS
     Dosage: 15/25
     Route: 058
  15. BUMEX [Concomitant]
     Dosage: 1MG, BID
     Route: 048
  16. VITAMIN D                          /00318501/ [Concomitant]
     Dosage: UNK
  17. VITAMIN C                          /00008001/ [Concomitant]
     Dosage: UNK
  18. ASPIRIN [Concomitant]
     Dosage: UNK

REACTIONS (1)
  - Haemoglobin decreased [Unknown]
